FAERS Safety Report 6997534-2 (Version None)
Quarter: 2010Q3

REPORT INFORMATION
  Report Type: 
  Country: None (occurrence: None)
  Receive Date: 20100918
  Receipt Date: 20091123
  Transmission Date: 20110219
  Serious: No
  Sender: FDA-Public Use
  Company Number: US-WYE-H12002809

PATIENT
  Sex: Male

DRUGS (6)
  1. PRISTIQ [Suspect]
     Indication: ANXIETY
     Route: 048
     Dates: start: 20081101
  2. PRISTIQ [Suspect]
     Indication: DEPRESSION
  3. MELATONIN [Concomitant]
  4. MAGNESIUM CITRATE [Concomitant]
  5. ATIVAN [Concomitant]
  6. DEPAKOTE [Concomitant]

REACTIONS (4)
  - ANXIETY [None]
  - CONDITION AGGRAVATED [None]
  - DRUG INEFFECTIVE [None]
  - ENERGY INCREASED [None]
